FAERS Safety Report 24088681 (Version 1)
Quarter: 2024Q3

REPORT INFORMATION
  Report Type: Spontaneous
  Country: US (occurrence: US)
  Receive Date: 20240715
  Receipt Date: 20240715
  Transmission Date: 20241017
  Serious: Yes (Other)
  Sender: SANOFI AVENTIS
  Company Number: US-SA-2024SA201952

PATIENT
  Age: 60 Year
  Sex: Female

DRUGS (3)
  1. DUPILUMAB [Suspect]
     Active Substance: DUPILUMAB
     Indication: Angioedema
     Dosage: UNK
  2. DUPILUMAB [Suspect]
     Active Substance: DUPILUMAB
     Indication: Urticaria
  3. DUPILUMAB [Suspect]
     Active Substance: DUPILUMAB
     Indication: Dermatitis contact

REACTIONS (5)
  - Cutaneous T-cell lymphoma [Unknown]
  - Condition aggravated [Unknown]
  - Rash [Unknown]
  - Unmasking of previously unidentified disease [Unknown]
  - Unintentional use for unapproved indication [Unknown]
